FAERS Safety Report 10230584 (Version 4)
Quarter: 2014Q3

REPORT INFORMATION
  Report Type: Spontaneous
  Country: US (occurrence: US)
  Receive Date: 20140611
  Receipt Date: 20140808
  Transmission Date: 20150326
  Serious: Yes (Hospitalization, Other)
  Sender: FDA-Public Use
  Company Number: US-INCYTE CORPORATION-2014IN000869

PATIENT
  Age: 79 Year
  Sex: Female
  Weight: 63.49 kg

DRUGS (9)
  1. ARMOUR THYROID [Concomitant]
     Active Substance: THYROID, PORCINE\THYROID, UNSPECIFIED
     Dosage: 120 MG, QD
     Route: 048
  2. JAKAFI [Suspect]
     Active Substance: RUXOLITINIB
     Indication: MYELOFIBROSIS
     Dosage: 5 MG, BID
     Route: 048
     Dates: start: 20140320
  3. JAKAFI [Suspect]
     Active Substance: RUXOLITINIB
     Indication: MYELOFIBROSIS
     Dosage: 5 MG, QD
     Route: 048
     Dates: start: 20140604
  4. CRANBERRY                          /01512301/ [Concomitant]
  5. DIOVAN HCT [Concomitant]
     Active Substance: HYDROCHLOROTHIAZIDE\VALSARTAN
     Dosage: 320MG-25MG, HALF A PILL, QD
     Route: 048
  6. VITAMIN D [Concomitant]
     Active Substance: CHOLECALCIFEROL
     Dosage: 400 UNIT , TAKE 2. PATIENT TAKES 10,000IU, ON HOLD BY PATIENT
     Route: 048
     Dates: start: 201311, end: 20140220
  7. PROBIOTICS NOS [Concomitant]
     Active Substance: PROBIOTICS NOS
     Dosage: 1 DAILY
     Route: 048
  8. ULORIC [Concomitant]
     Active Substance: FEBUXOSTAT
     Dosage: 80 MG, QD
     Route: 048
     Dates: start: 201312
  9. FIBROSINE [Concomitant]

REACTIONS (16)
  - Anaemia [Recovered/Resolved]
  - Vomiting [Recovered/Resolved]
  - Diarrhoea [Unknown]
  - Throat irritation [Unknown]
  - Pallor [Unknown]
  - Contusion [Unknown]
  - Oedema peripheral [Unknown]
  - Fatigue [Recovering/Resolving]
  - Asthenia [Unknown]
  - Chills [Unknown]
  - Blood creatinine increased [Unknown]
  - Blood urea increased [Unknown]
  - Malaise [Unknown]
  - Urinary tract infection [Unknown]
  - Incarcerated hernia [Recovered/Resolved]
  - Abdominal pain [Unknown]

NARRATIVE: CASE EVENT DATE: 20140327
